FAERS Safety Report 17670396 (Version 15)
Quarter: 2025Q2

REPORT INFORMATION
  Report Type: Report from Study
  Country: US (occurrence: US)
  Receive Date: 20200415
  Receipt Date: 20250623
  Transmission Date: 20250716
  Serious: Yes (Hospitalization, Other)
  Sender: TAKEDA
  Company Number: US-SHIRE-US202013328

PATIENT
  Sex: Female
  Weight: 86 kg

DRUGS (22)
  1. HUMAN IMMUNOGLOBULIN G [Suspect]
     Active Substance: HUMAN IMMUNOGLOBULIN G
     Indication: Immunodeficiency common variable
     Dosage: 7.5 GRAM, 1/WEEK
  2. HUMAN IMMUNOGLOBULIN G [Suspect]
     Active Substance: HUMAN IMMUNOGLOBULIN G
     Dosage: 7.5 GRAM, 1/WEEK
     Dates: start: 20130402
  3. HUMAN IMMUNOGLOBULIN G [Suspect]
     Active Substance: HUMAN IMMUNOGLOBULIN G
     Dosage: 7.5 GRAM, 1/WEEK
  4. DIPHENHYDRAMINE [Concomitant]
     Active Substance: DIPHENHYDRAMINE
  5. CALTRATE WITH VITAMIN D [Concomitant]
     Active Substance: CALCIUM CARBONATE\CHOLECALCIFEROL
  6. CYANOCOBALAMIN [Concomitant]
     Active Substance: CYANOCOBALAMIN
  7. EPINEPHRINE [Concomitant]
     Active Substance: EPINEPHRINE
  8. BALSALAZIDE DISODIUM [Concomitant]
     Active Substance: BALSALAZIDE DISODIUM
  9. OMEPRAZOLE [Concomitant]
     Active Substance: OMEPRAZOLE
  10. FISH OIL\OMEGA-3 FATTY ACIDS [Concomitant]
     Active Substance: FISH OIL\OMEGA-3 FATTY ACIDS
  11. VITAMIN D3 [Concomitant]
     Active Substance: CHOLECALCIFEROL
  12. EVENITY [Concomitant]
     Active Substance: ROMOSOZUMAB-AQQG
  13. SINGULAIR [Concomitant]
     Active Substance: MONTELUKAST SODIUM
  14. POTASSIUM GLUCONATE [Concomitant]
     Active Substance: POTASSIUM GLUCONATE
  15. CHONDROITIN SULFATE (BOVINE)\GLUCOSAMINE HYDROCHLORIDE [Concomitant]
     Active Substance: CHONDROITIN SULFATE (BOVINE)\GLUCOSAMINE HYDROCHLORIDE
  16. VITAMIN C [Concomitant]
     Active Substance: ASCORBIC ACID
  17. DIPHENHYDRAMINE HYDROCHLORIDE [Concomitant]
     Active Substance: DIPHENHYDRAMINE HYDROCHLORIDE
  18. DIETARY SUPPLEMENT\RESVERATROL [Concomitant]
     Active Substance: DIETARY SUPPLEMENT\RESVERATROL
  19. LOSARTAN POTASSIUM [Concomitant]
     Active Substance: LOSARTAN POTASSIUM
  20. GABAPENTIN [Concomitant]
     Active Substance: GABAPENTIN
  21. BIOTIN [Concomitant]
     Active Substance: BIOTIN
  22. RECLAST [Concomitant]
     Active Substance: ZOLEDRONIC ACID

REACTIONS (19)
  - Nephrolithiasis [Unknown]
  - Lower limb fracture [Unknown]
  - Neuropathy peripheral [Unknown]
  - Genital abscess [Unknown]
  - Fine motor skill dysfunction [Unknown]
  - Multiple allergies [Unknown]
  - Seasonal allergy [Unknown]
  - Crying [Unknown]
  - Osteoporosis [Unknown]
  - Eye pruritus [Unknown]
  - Poor venous access [Unknown]
  - Blood pressure abnormal [Unknown]
  - Nasopharyngitis [Unknown]
  - Product dose omission issue [Unknown]
  - Pain [Unknown]
  - Rhinorrhoea [Unknown]
  - Fatigue [Unknown]
  - Urticaria [Recovered/Resolved]
  - Hypersensitivity [Unknown]
